FAERS Safety Report 13737186 (Version 1)
Quarter: 2017Q3

REPORT INFORMATION
  Report Type: Spontaneous
  Country: US (occurrence: US)
  Receive Date: 20170710
  Receipt Date: 20170710
  Transmission Date: 20171127
  Serious: No
  Sender: FDA-Public Use
  Company Number: US-SAOL THERAPEUTICS-2016SAO00049

PATIENT
  Age: 19 Year
  Sex: Male

DRUGS (18)
  1. BACLOFEN. [Suspect]
     Active Substance: BACLOFEN
     Indication: MUSCLE SPASTICITY
     Dosage: 75 ?G, \DAY
     Route: 037
     Dates: start: 20160426, end: 20160504
  2. BENZOYL PEROXIDE. [Suspect]
     Active Substance: BENZOYL PEROXIDE
     Dosage: 1 DOSAGE UNITS, 2X/DAY
     Route: 061
     Dates: start: 20160415
  3. BACLOFEN. [Suspect]
     Active Substance: BACLOFEN
     Dosage: 15 MG, 3X/DAY
     Route: 048
     Dates: start: 20160415
  4. BACLOFEN. [Suspect]
     Active Substance: BACLOFEN
     Indication: CEREBRAL PALSY
     Dosage: 82.9 ?G, \DAY
     Route: 037
     Dates: start: 20160505, end: 20160513
  5. BACLOFEN. [Suspect]
     Active Substance: BACLOFEN
     Dosage: 99.97 ?G, \DAY
     Dates: start: 20160516
  6. BISACODYL EC [Suspect]
     Active Substance: BISACODYL
     Dosage: 5 MG, AS NEEDED
     Route: 048
     Dates: start: 20160328
  7. POLYETHYLENE GLYCOL [Suspect]
     Active Substance: POLYETHYLENE GLYCOLS
     Dosage: 17 G, 1X/DAY
     Route: 048
     Dates: start: 20160328
  8. DOCUSATE SODIUM. [Suspect]
     Active Substance: DOCUSATE SODIUM
     Dosage: 100 MG, 1X/DAY
     Route: 048
     Dates: start: 20160328
  9. VITAMIN D3 [Suspect]
     Active Substance: CHOLECALCIFEROL
     Dosage: 1 TABLETS, 1X/DAY
  10. FLUOXETINE [Suspect]
     Active Substance: FLUOXETINE HYDROCHLORIDE
     Dosage: 10 MG, UNK
     Route: 048
     Dates: start: 20160526
  11. BACLOFEN. [Suspect]
     Active Substance: BACLOFEN
     Dosage: 91.07 ?G, \DAY
     Dates: start: 20160513, end: 20160516
  12. HYDROCORTISONE. [Suspect]
     Active Substance: HYDROCORTISONE
     Dosage: UNK
     Dates: start: 20160527
  13. KLONOPIN [Suspect]
     Active Substance: CLONAZEPAM
     Dosage: 0.125 MG, 2X/DAY
     Route: 048
     Dates: start: 20160328
  14. CETIRIZINE [Suspect]
     Active Substance: CETIRIZINE HYDROCHLORIDE
     Dosage: 10 MG, 1X/DAY
     Route: 048
     Dates: start: 20160415
  15. ACETAMINOPHEN. [Suspect]
     Active Substance: ACETAMINOPHEN
     Dosage: 650 MG, AS NEEDED
     Route: 048
     Dates: start: 20160328
  16. MULTIVITAMIN WITH MINERAL [Suspect]
     Active Substance: MINERALS\VITAMINS
     Dosage: 1 TABLETS, 1X/DAY
     Route: 048
  17. FLUOXETINE [Suspect]
     Active Substance: FLUOXETINE HYDROCHLORIDE
     Dosage: 20 UNK, UNK
  18. DIPHENHYDRAMINE. [Suspect]
     Active Substance: DIPHENHYDRAMINE
     Dosage: UNK
     Dates: start: 20160527

REACTIONS (1)
  - Hypertonia [Recovering/Resolving]

NARRATIVE: CASE EVENT DATE: 20160426
